FAERS Safety Report 21886671 (Version 2)
Quarter: 2023Q1

REPORT INFORMATION
  Report Type: Report from Study
  Country: RE (occurrence: RE)
  Receive Date: 20230119
  Receipt Date: 20230124
  Transmission Date: 20230418
  Serious: Yes (Death, Other)
  Sender: FDA-Public Use
  Company Number: RE-GILEAD-2022-0601250

PATIENT
  Sex: Female
  Weight: 45 kg

DRUGS (1)
  1. SACITUZUMAB GOVITECAN-HZIY [Suspect]
     Active Substance: SACITUZUMAB GOVITECAN-HZIY
     Indication: Triple negative breast cancer
     Dosage: 7.4 MG/KG, C1 D1
     Route: 042
     Dates: start: 20220912, end: 20221015

REACTIONS (3)
  - Death [Fatal]
  - Fatigue [Unknown]
  - Off label use [Unknown]
